FAERS Safety Report 21068618 (Version 10)
Quarter: 2024Q1

REPORT INFORMATION
  Report Type: Spontaneous
  Country: US (occurrence: US)
  Receive Date: 20220712
  Receipt Date: 20240222
  Transmission Date: 20240409
  Serious: No
  Sender: FDA-Public Use
  Company Number: US-BRISTOL-MYERS SQUIBB COMPANY-2022-072290

PATIENT
  Age: 43 Year
  Sex: Female

DRUGS (4)
  1. ORENCIA [Suspect]
     Active Substance: ABATACEPT
     Indication: Rheumatoid arthritis
     Route: 058
     Dates: start: 20220615
  2. ORENCIA [Suspect]
     Active Substance: ABATACEPT
     Route: 058
     Dates: start: 202206
  3. ORENCIA [Suspect]
     Active Substance: ABATACEPT
     Route: 058
     Dates: start: 202206
  4. PRALUENT [Concomitant]
     Active Substance: ALIROCUMAB
     Indication: Product used for unknown indication

REACTIONS (12)
  - Joint swelling [Unknown]
  - Arthralgia [Unknown]
  - Therapeutic response decreased [Unknown]
  - Rash [Unknown]
  - Conjunctivitis [Not Recovered/Not Resolved]
  - Decreased appetite [Unknown]
  - Eye pruritus [Not Recovered/Not Resolved]
  - Eyelid margin crusting [Not Recovered/Not Resolved]
  - Migraine [Unknown]
  - Influenza like illness [Unknown]
  - Miliaria [Unknown]
  - General physical health deterioration [Unknown]
